FAERS Safety Report 7564585-9 (Version None)
Quarter: 2011Q2

REPORT INFORMATION
  Report Type: 
  Country: None (occurrence: None)
  Receive Date: 20110622
  Receipt Date: 20100813
  Transmission Date: 20111010
  Serious: Yes (Other)
  Sender: FDA-Public Use
  Company Number: US-MYLANLABS-2010S1010687

PATIENT
  Age: 54 Year
  Sex: Male
  Weight: 95.26 kg

DRUGS (13)
  1. TRILAFON /00023401/ [Concomitant]
  2. BUSPAR [Concomitant]
  3. VITAMIN TAB [Concomitant]
  4. SPIRIVA [Concomitant]
  5. LEVOTHYROXINE SODIUM [Concomitant]
  6. DITROPAN [Concomitant]
  7. CLOZAPINE [Suspect]
     Indication: SCHIZOPHRENIA, PARANOID TYPE
     Route: 048
     Dates: end: 20100701
  8. COGENTIN [Concomitant]
     Route: 048
  9. CLOZAPINE [Suspect]
     Route: 048
     Dates: end: 20100701
  10. CELEXA [Concomitant]
  11. KLONOPIN [Concomitant]
  12. GEODON [Concomitant]
  13. FLUTICASONE PROPIONATE [Concomitant]

REACTIONS (2)
  - GRANULOCYTOPENIA [None]
  - LEUKOPENIA [None]
